FAERS Safety Report 9553719 (Version 1)
Quarter: 2013Q2

REPORT INFORMATION
  Report Type: Spontaneous
  Country: US (occurrence: None)
  Receive Date: 20130422
  Receipt Date: 20130422
  Transmission Date: 20140414
  Serious: Yes (Other)
  Sender: FDA-Public Use
  Company Number: FK201202952

PATIENT
  Age: 15 Year
  Sex: Female
  Weight: 45 kg

DRUGS (5)
  1. METHOTREXATE (METHOTREXATE) [Suspect]
     Indication: POLYARTHRITIS
     Route: 058
     Dates: start: 20120907
  2. FOLIC ACID [Concomitant]
  3. ASPIRIN (ACETYLSALICYLIC ACID) [Concomitant]
  4. VITAMINS [Concomitant]
  5. IBUPROFEN (IBUPROFEN) [Concomitant]

REACTIONS (1)
  - Hypersensitivity [None]
